FAERS Safety Report 18113404 (Version 13)
Quarter: 2024Q4

REPORT INFORMATION
  Report Type: Spontaneous
  Country: US (occurrence: US)
  Receive Date: 20200805
  Receipt Date: 20241216
  Transmission Date: 20250115
  Serious: No
  Sender: PFIZER
  Company Number: US-PFIZER INC-2020295052

PATIENT
  Age: 71 Year
  Sex: Female
  Weight: 83.91 kg

DRUGS (4)
  1. DOFETILIDE [Suspect]
     Active Substance: DOFETILIDE
     Indication: Arrhythmia
     Dosage: TAKE 1 CAPSULE (250 MCG) 2 TIMES DAILY
     Route: 048
  2. DOFETILIDE [Suspect]
     Active Substance: DOFETILIDE
     Indication: Cardiac disorder
  3. DOFETILIDE [Suspect]
     Active Substance: DOFETILIDE
     Indication: Atrial fibrillation
  4. DOFETILIDE [Suspect]
     Active Substance: DOFETILIDE
     Indication: Blood potassium decreased

REACTIONS (1)
  - Drug ineffective [Unknown]
